FAERS Safety Report 20265451 (Version 1)
Quarter: 2021Q4

REPORT INFORMATION
  Report Type: Spontaneous
  Country: US (occurrence: None)
  Receive Date: 20211231
  Receipt Date: 20211231
  Transmission Date: 20220303
  Serious: Yes (Disabling)
  Sender: FDA-Public Use
  Company Number: None

PATIENT
  Age: 73 Year
  Sex: Female
  Weight: 60.75 kg

DRUGS (2)
  1. PFIZER-BIONTECH COVID-19 VACCINE [Suspect]
     Active Substance: TOZINAMERAN
     Indication: COVID-19 immunisation
  2. HYDROCORTISONE [Suspect]
     Active Substance: HYDROCORTISONE

REACTIONS (2)
  - Adrenal insufficiency [None]
  - General physical health deterioration [None]

NARRATIVE: CASE EVENT DATE: 20210317
